FAERS Safety Report 17202834 (Version 1)
Quarter: 2019Q4

REPORT INFORMATION
  Report Type: Spontaneous
  Country: GB (occurrence: GB)
  Receive Date: 20191226
  Receipt Date: 20191226
  Transmission Date: 20200122
  Serious: Yes (Hospitalization)
  Sender: FDA-Public Use
  Company Number: GB-PFIZER INC-2019550111

PATIENT
  Age: 82 Year
  Sex: Female

DRUGS (4)
  1. COCODAMOL [Concomitant]
     Active Substance: ACETAMINOPHEN\CODEINE PHOSPHATE
     Dosage: UNK UNK, AS NEEDED
  2. IBUPROFEN. [Suspect]
     Active Substance: IBUPROFEN
     Indication: BACK PAIN
     Dosage: 600 MG, 1X/DAY
     Route: 048
     Dates: start: 20191028
  3. HYDROCORTISONE SODIUM SUCCINATE [Suspect]
     Active Substance: HYDROCORTISONE SODIUM SUCCINATE
     Indication: HYPOTHALAMO-PITUITARY DISORDER
     Dosage: 20 MG, 1X/DAY
     Route: 048
     Dates: start: 2004
  4. LEVOTHYROXINE. [Concomitant]
     Active Substance: LEVOTHYROXINE
     Dosage: UNK

REACTIONS (6)
  - Haematemesis [Unknown]
  - Gastrointestinal haemorrhage [Recovering/Resolving]
  - Abdominal pain [Unknown]
  - Mallory-Weiss syndrome [Unknown]
  - Duodenitis [Unknown]
  - Gastric ulcer [Unknown]

NARRATIVE: CASE EVENT DATE: 20191108
